FAERS Safety Report 10661052 (Version 2)
Quarter: 2014Q4

REPORT INFORMATION
  Report Type: Spontaneous
  Country: US (occurrence: US)
  Receive Date: 20141218
  Receipt Date: 20141222
  Transmission Date: 20150529
  Serious: Yes (Death, Hospitalization, Other)
  Sender: FDA-Public Use
  Company Number: US-UCBSA-2014021695

PATIENT
  Sex: Female
  Weight: 47 kg

DRUGS (1)
  1. CIMZIA [Suspect]
     Active Substance: CERTOLIZUMAB PEGOL
     Indication: CROHN^S DISEASE
     Dosage: 400 MG, EVERY 28 DAYS
     Route: 058
     Dates: start: 2010, end: 20141027

REACTIONS (5)
  - Urinary tract infection [Unknown]
  - Small intestinal obstruction [Recovered/Resolved]
  - Stoma site infection [Recovered/Resolved]
  - Sepsis [Fatal]
  - Skin cancer [Recovered/Resolved]

NARRATIVE: CASE EVENT DATE: 2013
